FAERS Safety Report 15178828 (Version 1)
Quarter: 2018Q3

REPORT INFORMATION
  Report Type: Report from Study
  Country: CO (occurrence: CO)
  Receive Date: 20180722
  Receipt Date: 20180722
  Transmission Date: 20181010
  Serious: Yes (Death, Other)
  Sender: FDA-Public Use
  Company Number: PHHY2018CO047161

PATIENT
  Sex: Female
  Weight: 35 kg

DRUGS (4)
  1. TOBI [Suspect]
     Active Substance: TOBRAMYCIN
     Indication: CYSTIC FIBROSIS
  2. TOBI PODHALER [Suspect]
     Active Substance: TOBRAMYCIN
     Indication: PSEUDOMONAS INFECTION
  3. TOBI [Suspect]
     Active Substance: TOBRAMYCIN
     Indication: PSEUDOMONAS INFECTION
     Dosage: 1 DF (300/5 MG/ML), Q12H
     Route: 055
     Dates: end: 20170503
  4. TOBI PODHALER [Suspect]
     Active Substance: TOBRAMYCIN
     Indication: CYSTIC FIBROSIS
     Dosage: UNK
     Route: 065

REACTIONS (7)
  - Intestinal obstruction [Unknown]
  - Dysphagia [Unknown]
  - Abdominal discomfort [Unknown]
  - Infective pulmonary exacerbation of cystic fibrosis [Fatal]
  - Underweight [Unknown]
  - Drug ineffective [Unknown]
  - Respiratory failure [Unknown]
